FAERS Safety Report 21912040 (Version 1)
Quarter: 2023Q1

REPORT INFORMATION
  Report Type: Spontaneous
  Country: US (occurrence: US)
  Receive Date: 20230125
  Receipt Date: 20230125
  Transmission Date: 20230418
  Serious: No
  Sender: FDA-Public Use
  Company Number: US-ALLERGAN-2232238US

PATIENT
  Age: 41 Year
  Sex: Male

DRUGS (2)
  1. BOTOX [Suspect]
     Active Substance: ONABOTULINUMTOXINA
     Indication: Neurogenic bladder
     Dosage: 100 UNITS, SINGLE
  2. BOTOX [Suspect]
     Active Substance: ONABOTULINUMTOXINA
     Indication: Hypertonic bladder

REACTIONS (3)
  - Post micturition dribble [Recovering/Resolving]
  - Bladder disorder [Unknown]
  - Residual urine volume increased [Unknown]
